FAERS Safety Report 8446000-6 (Version None)
Quarter: 2012Q2

REPORT INFORMATION
  Report Type: 
  Country: None (occurrence: None)
  Receive Date: 20120618
  Receipt Date: 20120607
  Transmission Date: 20120825
  Serious: Yes (Other)
  Sender: FDA-Public Use
  Company Number: GB-ASTRAZENECA-2011SE29864

PATIENT
  Age: 56 Year
  Sex: Female
  Weight: 52.2 kg

DRUGS (10)
  1. MAXALT [Concomitant]
  2. LISINOPRIL [Suspect]
     Indication: BLOOD PRESSURE ABNORMAL
     Route: 048
  3. SEROQUEL [Suspect]
     Indication: BIPOLAR DISORDER
     Route: 048
     Dates: start: 19990101
  4. SEROQUEL [Suspect]
     Route: 048
     Dates: end: 20120401
  5. ADVAIR DISKUS 100/50 [Concomitant]
  6. ALBUTEROL [Concomitant]
  7. SEROQUEL [Suspect]
     Indication: SLEEP DISORDER THERAPY
     Route: 048
     Dates: start: 19990101
  8. CELEXA [Concomitant]
  9. MAXAIR [Concomitant]
  10. SEROQUEL [Suspect]
     Route: 048
     Dates: end: 20120401

REACTIONS (9)
  - LEIOMYOSARCOMA [None]
  - LOSS OF CONSCIOUSNESS [None]
  - SELF INJURIOUS BEHAVIOUR [None]
  - DRUG DOSE OMISSION [None]
  - INSOMNIA [None]
  - BALANCE DISORDER [None]
  - CONTUSION [None]
  - OFF LABEL USE [None]
  - VAGINAL CANCER [None]
